FAERS Safety Report 11845180 (Version 1)
Quarter: 2015Q4

REPORT INFORMATION
  Report Type: Report from Study
  Country: DE (occurrence: DE)
  Receive Date: 20151217
  Receipt Date: 20151217
  Transmission Date: 20160305
  Serious: Yes (Other)
  Sender: FDA-Public Use
  Company Number: DE-ROCHE-1653532

PATIENT
  Age: 48 Year
  Sex: Female
  Weight: 60 kg

DRUGS (2)
  1. COBIMETINIB [Suspect]
     Active Substance: COBIMETINIB
     Indication: METASTATIC MALIGNANT MELANOMA
     Route: 048
     Dates: start: 20151008, end: 20151018
  2. VEMURAFENIB [Suspect]
     Active Substance: VEMURAFENIB
     Indication: METASTATIC MALIGNANT MELANOMA
     Route: 048
     Dates: start: 20120104

REACTIONS (10)
  - Pyrexia [Recovered/Resolved]
  - Chills [Unknown]
  - Oedema [Unknown]
  - Abdominal pain upper [Unknown]
  - Hepatomegaly [Recovered/Resolved]
  - Eczema [Unknown]
  - Nausea [Recovered/Resolved]
  - Muscle spasms [Unknown]
  - Back pain [Unknown]
  - Blood pressure increased [Unknown]

NARRATIVE: CASE EVENT DATE: 20151012
